FAERS Safety Report 9154505 (Version 1)
Quarter: 2013Q1

REPORT INFORMATION
  Report Type: Spontaneous
  Country: US (occurrence: None)
  Receive Date: 20130205
  Receipt Date: 20130205
  Transmission Date: 20140127
  Serious: Yes (Hospitalization)
  Sender: FDA-Public Use
  Company Number: USA/USA/13/0027623

PATIENT
  Age: 64 Year
  Sex: Female

DRUGS (7)
  1. STUDY DRUG NOT ADMINISTERED [Suspect]
  2. LEVAQUIN (LEVOFLOXACIN) [Suspect]
  3. ROCEPHIN (CEFTRIAXONE SODIUM) [Suspect]
  4. HYDROCHLOROTHIAZIDE (HYDROCHLOROTHIAZIDE) [Concomitant]
  5. RANITIDINE (RANITIDINE HYDROCHLORIDE) [Concomitant]
  6. ESTRACE (ESTRADIOL) [Concomitant]
  7. ENJUVIA (ESTROGENS CONJUGATED) [Concomitant]

REACTIONS (1)
  - Upper respiratory tract infection [None]
